FAERS Safety Report 9329630 (Version 1)
Quarter: 2013Q2

REPORT INFORMATION
  Report Type: Spontaneous
  Country: US (occurrence: US)
  Receive Date: 20130604
  Receipt Date: 20130604
  Transmission Date: 20140414
  Serious: No
  Sender: FDA-Public Use
  Company Number: US-SANOFI-AVENTIS-2013SA031913

PATIENT
  Age: 62 Year
  Sex: Female

DRUGS (4)
  1. LANTUS [Suspect]
     Indication: TYPE 2 DIABETES MELLITUS
     Dosage: DOSAGE - 20 TO 30 UNITS DAILY
     Route: 051
  2. GLIPIZIDE [Concomitant]
  3. METFORMIN [Concomitant]
  4. NOVOLOG [Concomitant]

REACTIONS (4)
  - Nasopharyngitis [Not Recovered/Not Resolved]
  - Nasal congestion [Not Recovered/Not Resolved]
  - Local swelling [Recovered/Resolved]
  - Blood glucose increased [Unknown]
